FAERS Safety Report 4617733-4 (Version None)
Quarter: 2005Q1

REPORT INFORMATION
  Report Type: 
  Country: None (occurrence: None)
  Receive Date: 20050322
  Receipt Date: 20050310
  Transmission Date: 20050727
  Serious: Yes (Death)
  Sender: FDA-Public Use
  Company Number: 805#1#2005-00010

PATIENT
  Age: 69 Year
  Sex: Male

DRUGS (2)
  1. PROSTANDIN                                 (ALPROSTADIL (PAOD)) [Suspect]
     Indication: HEPATIC FAILURE
     Dosage: INTRAVENOUS DRIP
     Route: 041
  2. AMINO-ACID-PREPARATION (AMINO ACIDS NOS) [Concomitant]

REACTIONS (1)
  - HEPATIC NEOPLASM MALIGNANT [None]
